FAERS Safety Report 5155554-7 (Version None)
Quarter: 2006Q4

REPORT INFORMATION
  Report Type: 
  Country: None (occurrence: None)
  Receive Date: 20061114
  Receipt Date: 20061108
  Transmission Date: 20070319
  Serious: Yes (Life-Threatening, Hospitalization)
  Sender: FDA-Public Use
  Company Number: CLOF-10373

PATIENT
  Age: 64 Year
  Sex: Male

DRUGS (3)
  1. CLOFARABINE [Suspect]
     Indication: ACUTE MYELOID LEUKAEMIA
     Dosage: 82 MG QD X 5 IV
     Route: 042
     Dates: start: 20061024, end: 20061028
  2. CYTARABINE [Suspect]
     Indication: ACUTE MYELOID LEUKAEMIA
     Dosage: 4120 MG QD X 5 IV
     Route: 042
     Dates: start: 20061024, end: 20061028
  3. BENADRYL [Suspect]
     Indication: DRUG USE FOR UNKNOWN INDICATION

REACTIONS (7)
  - AORTIC VALVE SCLEROSIS [None]
  - ASPERGILLOSIS [None]
  - CARDIO-RESPIRATORY ARREST [None]
  - CONFUSIONAL STATE [None]
  - FUNGUS SPUTUM TEST POSITIVE [None]
  - MYOCARDIAL INFARCTION [None]
  - TRICUSPID VALVE INCOMPETENCE [None]
